FAERS Safety Report 4921281-1 (Version None)
Quarter: 2006Q1

REPORT INFORMATION
  Report Type: 
  Country: None (occurrence: None)
  Receive Date: 20060222
  Receipt Date: 20060222
  Transmission Date: 20060701
  Serious: Yes (Hospitalization, Other)
  Sender: FDA-Public Use
  Company Number: None

PATIENT
  Age: 67 Year
  Sex: Male
  Weight: 81.6475 kg

DRUGS (1)
  1. BSS [Suspect]

REACTIONS (3)
  - CATARACT OPERATION COMPLICATION [None]
  - EYE IRRITATION [None]
  - LACRIMATION INCREASED [None]
